FAERS Safety Report 4604435-3 (Version None)
Quarter: 2005Q2

REPORT INFORMATION
  Report Type: 
  Country: None (occurrence: None)
  Receive Date: 20050223
  Receipt Date: 20041026
  Transmission Date: 20051028
  Serious: No
  Sender: FDA-Public Use
  Company Number: PHEH2004US11576

PATIENT
  Age: 30 Year
  Sex: Female

DRUGS (3)
  1. ZELNORM [Suspect]
     Dates: start: 20041101, end: 20040901
  2. ZELNORM [Suspect]
     Dates: start: 20041001
  3. TYLENOL [Concomitant]

REACTIONS (1)
  - LABORATORY TEST INTERFERENCE [None]
